FAERS Safety Report 6672003-8 (Version None)
Quarter: 2010Q2

REPORT INFORMATION
  Report Type: 
  Country: None (occurrence: None)
  Receive Date: 20100407
  Receipt Date: 20100331
  Transmission Date: 20101027
  Serious: Yes (Hospitalization, Other)
  Sender: FDA-Public Use
  Company Number: DE-MERCK-1001DEU00116

PATIENT
  Age: 81 Year
  Sex: Male

DRUGS (1)
  1. JANUVIA [Suspect]
     Indication: DIABETES MELLITUS
     Route: 048
     Dates: end: 20100101

REACTIONS (4)
  - CARDIAC FAILURE [None]
  - CONVULSION [None]
  - HYPOGLYCAEMIA [None]
  - MUSCLE SPASMS [None]
